FAERS Safety Report 4820844-1 (Version None)
Quarter: 2005Q4

REPORT INFORMATION
  Report Type: 
  Country: None (occurrence: None)
  Receive Date: 20051104
  Receipt Date: 20050426
  Transmission Date: 20060501
  Serious: Yes (Death, Other)
  Sender: FDA-Public Use
  Company Number: GB-AVENTIS-200513812GDDC

PATIENT
  Age: 60 Year
  Sex: Male

DRUGS (5)
  1. ARAVA [Suspect]
     Indication: RHEUMATOID ARTHRITIS
     Route: 048
     Dates: start: 20031201
  2. PHYLLOCONTIN [Concomitant]
     Indication: ASTHMA
     Dosage: DOSE: UNK
     Route: 048
  3. FOSAMAX [Concomitant]
     Indication: OSTEOPOROSIS
     Dosage: DOSE: UNK
     Dates: start: 20020901
  4. VENTOLIN [Concomitant]
     Indication: ASTHMA
     Dosage: DOSE: UNK
     Route: 055
  5. DELTACORTRIL [Concomitant]
     Indication: RHEUMATOID ARTHRITIS
     Dosage: DOSE: 5-10

REACTIONS (3)
  - HEPATIC FAILURE [None]
  - HEPATIC NECROSIS [None]
  - MULTI-ORGAN FAILURE [None]
